FAERS Safety Report 5842826-3 (Version None)
Quarter: 2008Q3

REPORT INFORMATION
  Report Type: 
  Country: None (occurrence: None)
  Receive Date: 20080813
  Receipt Date: 20080804
  Transmission Date: 20090109
  Serious: Yes (Other)
  Sender: FDA-Public Use
  Company Number: GB-RANBAXY-2008RR-16466

PATIENT

DRUGS (8)
  1. AMITRIPTYLINE HCL [Suspect]
     Indication: DEPRESSION
     Dosage: 50 MG, UNK
  2. PRAVASTATIN SODIUM [Suspect]
     Indication: HYPERCHOLESTEROLAEMIA
     Dosage: 20 MG, UNK
  3. ASPIRIN [Concomitant]
     Dosage: 75 MG, QD
  4. LEVOTHYROXINE SODIUM [Concomitant]
     Indication: HYPOTHYROIDISM
     Dosage: 75 UG, QD
  5. ATENOLOL [Concomitant]
     Indication: HYPERTENSION
     Dosage: 50 MG, UNK
  6. ARTHROTEC [Concomitant]
     Indication: ARTHRITIS
     Dosage: 50 MG, BID
  7. HYDROCORTISONE [Concomitant]
     Route: 042
  8. WARFARIN SODIUM [Concomitant]

REACTIONS (14)
  - ANOREXIA [None]
  - BLOOD ALBUMIN DECREASED [None]
  - COLITIS [None]
  - DEHYDRATION [None]
  - DRUG INTERACTION [None]
  - HAEMOGLOBIN DECREASED [None]
  - INFLAMMATORY BOWEL DISEASE [None]
  - INTESTINAL ISCHAEMIA [None]
  - LARGE INTESTINAL ULCER [None]
  - MEAN CELL HAEMOGLOBIN INCREASED [None]
  - PSEUDOPOLYPOSIS [None]
  - PULMONARY EMBOLISM [None]
  - SCAR [None]
  - WEIGHT DECREASED [None]
